FAERS Safety Report 18355915 (Version 14)
Quarter: 2024Q1

REPORT INFORMATION
  Report Type: Spontaneous
  Country: IN (occurrence: IN)
  Receive Date: 20201007
  Receipt Date: 20240312
  Transmission Date: 20240410
  Serious: Yes (Hospitalization, Other)
  Sender: FDA-Public Use
  Company Number: IN-PFIZER INC-2020089541

PATIENT
  Age: 48 Year
  Sex: Female
  Weight: 66 kg

DRUGS (16)
  1. PALBOCICLIB [Suspect]
     Active Substance: PALBOCICLIB
     Indication: Breast cancer metastatic
     Dosage: 125 MG, CYCLIC (ONCE DAILY (OD), ON 3 WEEKS, STOP FOR 7 DAYS; AFTER FOOD)
     Route: 048
     Dates: start: 20200122
  2. PALBOCICLIB [Suspect]
     Active Substance: PALBOCICLIB
     Dosage: UNK
     Dates: end: 202207
  3. PALBOCICLIB [Suspect]
     Active Substance: PALBOCICLIB
     Dosage: 100 MG, 1X/DAY
     Route: 048
  4. PALBOCICLIB [Suspect]
     Active Substance: PALBOCICLIB
     Dosage: 125 MG, CYCLIC(ONCE A DAY FOR 21 DAYS, 8DAYS GAP)
     Dates: start: 20230108
  5. PALBOCICLIB [Suspect]
     Active Substance: PALBOCICLIB
     Dosage: 100 MG, 1X/DAY
     Route: 048
  6. LETROZOLE [Concomitant]
     Active Substance: LETROZOLE
     Dosage: 2.5 MG, 1X/DAY
     Route: 048
  7. LETROZOLE [Concomitant]
     Active Substance: LETROZOLE
     Dosage: UNK
     Dates: start: 20200113
  8. CALCIUM CITRATE MALATE [Concomitant]
     Active Substance: CALCIUM CITRATE MALATE
     Dosage: UNK, 2X/DAY
  9. ZOLEDRONIC ACID [Concomitant]
     Active Substance: ZOLEDRONIC ACID
     Dosage: 4 MG, CYCLIC, 1 EVERY 3 MONTHS
  10. SODIUM CHLORIDE [Concomitant]
     Active Substance: SODIUM CHLORIDE
     Dosage: 100 ML
  11. ONDET [Concomitant]
     Dosage: 2 ML
  12. ZIPANT [Concomitant]
     Dosage: 40 MG
  13. BETADINE [Concomitant]
     Active Substance: POVIDONE-IODINE
     Dosage: UNK, MWF 1-1-1
  14. GRILINCTUS [AMMONIUM CHLORIDE;CHLORPHENAMINE MALEATE;DEXTROMETHORPHAN [Concomitant]
     Dosage: UNK, AT BED TIME
  15. CALCIUM CARBONATE\CHOLECALCIFEROL [Concomitant]
     Active Substance: CALCIUM CARBONATE\CHOLECALCIFEROL
     Dosage: 500 MG (0-0-1)
  16. OSTEOFOS [Concomitant]
     Dosage: UNK

REACTIONS (15)
  - Cough [Unknown]
  - Dyspnoea [Unknown]
  - Weight decreased [Not Recovered/Not Resolved]
  - Mucosal inflammation [Recovered/Resolved]
  - Neutropenia [Unknown]
  - Nasal congestion [Unknown]
  - Heart rate increased [Unknown]
  - Hepatomegaly [Unknown]
  - Full blood count decreased [Unknown]
  - Mouth ulceration [Unknown]
  - Oropharyngeal pain [Unknown]
  - White blood cell count decreased [Unknown]
  - Haemoglobin decreased [Unknown]
  - Neoplasm progression [Unknown]
  - Inappropriate schedule of product administration [Unknown]

NARRATIVE: CASE EVENT DATE: 20200101
